FAERS Safety Report 18485128 (Version 3)
Quarter: 2020Q4

REPORT INFORMATION
  Report Type: Spontaneous
  Country: US (occurrence: US)
  Receive Date: 20201110
  Receipt Date: 20201117
  Transmission Date: 20210114
  Serious: Yes (Life-Threatening, Other)
  Sender: FDA-Public Use
  Company Number: US-PFIZER INC-2020437191

PATIENT
  Age: 53 Year
  Sex: Male

DRUGS (2)
  1. DENILEUKIN DIFTITOX [Concomitant]
     Active Substance: DENILEUKIN DIFTITOX
     Indication: LYMPHOMA
     Dosage: UNK, CYCLIC (THREE CYCLES)
  2. GEMCITABINE HYDROCHLORIDE. [Suspect]
     Active Substance: GEMCITABINE HYDROCHLORIDE
     Indication: LYMPHOMA
     Dosage: 750 MG/M2, CYCLIC (D1-14 (01=014); 4500 MG/MG2, EVERY 2 WEEKS)
     Route: 065

REACTIONS (6)
  - Dyspnoea [Unknown]
  - Pericardial effusion [Not Recovered/Not Resolved]
  - Cardiotoxicity [Unknown]
  - Pulmonary toxicity [Unknown]
  - Off label use [Unknown]
  - Product use in unapproved indication [Unknown]
